FAERS Safety Report 7812782-7 (Version None)
Quarter: 2011Q4

REPORT INFORMATION
  Report Type: 
  Country: None (occurrence: None)
  Receive Date: 20111013
  Receipt Date: 20111007
  Transmission Date: 20120403
  Serious: Yes (Death)
  Sender: FDA-Public Use
  Company Number: US-DX529-2011DX000052

PATIENT
  Age: 79 None
  Sex: Female

DRUGS (2)
  1. KALBITOR [Suspect]
     Indication: ANGIOEDEMA
     Route: 058
     Dates: start: 20110101, end: 20110101
  2. KALBITOR [Suspect]
     Route: 058
     Dates: start: 20110101, end: 20110101

REACTIONS (3)
  - DRUG INEFFECTIVE FOR UNAPPROVED INDICATION [None]
  - DIALYSIS [None]
  - GENERAL PHYSICAL HEALTH DETERIORATION [None]
